FAERS Safety Report 7702199-8 (Version None)
Quarter: 2011Q3

REPORT INFORMATION
  Report Type: 
  Country: None (occurrence: None)
  Receive Date: 20110822
  Receipt Date: 20110818
  Transmission Date: 20111222
  Serious: Yes (Hospitalization)
  Sender: FDA-Public Use
  Company Number: US-GILEAD-2011-0042231

PATIENT
  Sex: Female

DRUGS (7)
  1. ADCIRCA [Concomitant]
  2. LETAIRIS [Suspect]
     Indication: CORONARY ARTERY DISEASE
  3. LETAIRIS [Suspect]
     Indication: ATRIAL SEPTAL DEFECT
  4. LIPITOR [Concomitant]
     Dates: start: 20100401
  5. REVATIO [Concomitant]
  6. TYLENOL-500 [Concomitant]
  7. LETAIRIS [Suspect]
     Indication: PULMONARY HYPERTENSION
     Route: 048
     Dates: start: 20100201, end: 20110727

REACTIONS (2)
  - LIVER INJURY [None]
  - LIVER FUNCTION TEST ABNORMAL [None]
